FAERS Safety Report 9460797 (Version 2)
Quarter: 2014Q1

REPORT INFORMATION
  Report Type: Report from Study
  Country: JP (occurrence: JP)
  Receive Date: 20130815
  Receipt Date: 20140212
  Transmission Date: 20141002
  Serious: Yes (Hospitalization, Other)
  Sender: FDA-Public Use
  Company Number: JP-009507513-1308JPN004607

PATIENT
  Age: 81 Year
  Sex: Male

DRUGS (11)
  1. GLACTIV [Suspect]
     Indication: TYPE 2 DIABETES MELLITUS
     Dosage: 25 MG, ONCE A DAY
     Route: 048
     Dates: start: 20120523, end: 20130215
  2. BUFFERIN [Concomitant]
     Dosage: UNK
  3. OMEPRAZOLE [Concomitant]
     Route: 048
  4. CONIEL [Concomitant]
  5. NU-LOTAN [Concomitant]
  6. TICLOPIDINE HYDROCHLORIDE [Concomitant]
  7. MAGMITT [Concomitant]
  8. DEPAS [Concomitant]
  9. LENDORMIN [Concomitant]
  10. FEROTYM [Concomitant]
  11. CRESTOR [Concomitant]

REACTIONS (2)
  - Diabetes mellitus [Not Recovered/Not Resolved]
  - Dislocation of vertebra [Recovering/Resolving]
